FAERS Safety Report 24253211 (Version 1)
Quarter: 2024Q3

REPORT INFORMATION
  Report Type: Spontaneous
  Country: CN (occurrence: CN)
  Receive Date: 20240827
  Receipt Date: 20240827
  Transmission Date: 20241017
  Serious: Yes (Hospitalization)
  Sender: PAREXEL
  Company Number: CN-SHANGHAI JUNSHI BIOSCIENCES CO., LTD.-CN2024011095

PATIENT

DRUGS (13)
  1. TORIPALIMAB [Suspect]
     Active Substance: TORIPALIMAB
     Indication: Cervix carcinoma
     Dosage: 240 MG (D1)
     Route: 041
     Dates: start: 20240730, end: 20240730
  2. TORIPALIMAB [Suspect]
     Active Substance: TORIPALIMAB
     Indication: Metastases to lung
  3. PARAPLATIN [Suspect]
     Active Substance: CARBOPLATIN
     Indication: Cervix carcinoma
     Dosage: 600 MG (D1)
     Route: 041
     Dates: start: 20240730, end: 20240730
  4. PARAPLATIN [Suspect]
     Active Substance: CARBOPLATIN
     Indication: Metastases to lung
  5. ALIMTA [Suspect]
     Active Substance: PEMETREXED DISODIUM
     Indication: Cervix carcinoma
     Dosage: 300 MG (D1)
     Route: 041
     Dates: start: 20240730, end: 20240730
  6. ALIMTA [Suspect]
     Active Substance: PEMETREXED DISODIUM
     Indication: Metastases to lung
  7. ALIMTA [Suspect]
     Active Substance: PEMETREXED DISODIUM
     Indication: Cervix carcinoma
     Dosage: 500 MG(D1)
     Route: 041
     Dates: start: 20240730, end: 20240730
  8. ALIMTA [Suspect]
     Active Substance: PEMETREXED DISODIUM
     Indication: Metastases to lung
  9. RIVOCERANIB MESYLATE [Suspect]
     Active Substance: RIVOCERANIB MESYLATE
     Indication: Cervix carcinoma
     Dosage: 0.25 G (D0), QD
     Route: 048
     Dates: start: 20240730, end: 20240806
  10. RIVOCERANIB MESYLATE [Suspect]
     Active Substance: RIVOCERANIB MESYLATE
     Indication: Metastases to lung
  11. SODIUM CHLORIDE [Concomitant]
     Active Substance: SODIUM CHLORIDE
     Indication: Medication dilution
     Dosage: 100 ML (D1)
     Route: 041
     Dates: start: 20240730, end: 20240730
  12. SODIUM CHLORIDE [Concomitant]
     Active Substance: SODIUM CHLORIDE
     Dosage: 100 ML
     Route: 041
     Dates: start: 20240730, end: 20240730
  13. DEXTROSE [Concomitant]
     Active Substance: DEXTROSE\DEXTROSE MONOHYDRATE
     Indication: Medication dilution
     Dosage: 500 ML (D1)
     Route: 041
     Dates: start: 20240730, end: 20240730

REACTIONS (2)
  - White blood cell count decreased [Unknown]
  - Neutrophil count decreased [Unknown]

NARRATIVE: CASE EVENT DATE: 20240802
